FAERS Safety Report 6686924-3 (Version None)
Quarter: 2010Q2

REPORT INFORMATION
  Report Type: 
  Country: None (occurrence: None)
  Receive Date: 20100419
  Receipt Date: 20100406
  Transmission Date: 20101027
  Serious: Yes (Hospitalization, Other)
  Sender: FDA-Public Use
  Company Number: PHHY2010JP04777

PATIENT
  Sex: Male
  Weight: 78 kg

DRUGS (6)
  1. VOLTAREN [Suspect]
     Indication: PAIN
     Dosage: 75 MG, UNK
     Route: 048
     Dates: end: 20100118
  2. MEVALOTIN [Suspect]
     Indication: HYPERLIPIDAEMIA
     Dosage: 10 MG, UNK
     Route: 048
     Dates: end: 20100118
  3. SELBEX [Concomitant]
     Indication: GASTRITIS
     Dosage: 3 DF, UNK
     Route: 048
  4. MAGMITT [Concomitant]
     Indication: CONSTIPATION
     Dosage: 990 MG, UNK
     Route: 048
  5. FAMOTIDINE [Concomitant]
     Indication: GASTRITIS
     Dosage: 20 MG, UNK
  6. URIEF [Concomitant]
     Indication: DYSURIA
     Dosage: 8 MG, UNK
     Route: 048

REACTIONS (3)
  - GENERALISED OEDEMA [None]
  - LUMBAR SPINAL STENOSIS [None]
  - WEIGHT INCREASED [None]
